FAERS Safety Report 7270823-2 (Version None)
Quarter: 2011Q1

REPORT INFORMATION
  Report Type: 
  Country: None (occurrence: None)
  Receive Date: 20110202
  Receipt Date: 20110124
  Transmission Date: 20110831
  Serious: Yes (Death, Hospitalization)
  Sender: FDA-Public Use
  Company Number: DE-JNJFOC-20101202194

PATIENT
  Age: 8 Decade
  Sex: Male

DRUGS (2)
  1. REOPRO [Suspect]
     Indication: ACUTE MYOCARDIAL INFARCTION
     Route: 022
  2. REOPRO [Suspect]
     Route: 022

REACTIONS (9)
  - BRAIN INJURY [None]
  - CARDIOGENIC SHOCK [None]
  - SEPSIS [None]
  - PNEUMONIA [None]
  - RENAL FAILURE [None]
  - VENTRICULAR FIBRILLATION [None]
  - INCORRECT ROUTE OF DRUG ADMINISTRATION [None]
  - HAEMORRHAGE [None]
  - CARDIAC ARREST [None]
